FAERS Safety Report 13759758 (Version 1)
Quarter: 2017Q3

REPORT INFORMATION
  Report Type: Report from Study
  Country: US (occurrence: US)
  Receive Date: 20170717
  Receipt Date: 20170717
  Transmission Date: 20171127
  Serious: Yes (Other)
  Sender: FDA-Public Use
  Company Number: US-GILEAD-2017-0283131

PATIENT
  Age: 72 Year
  Sex: Female

DRUGS (1)
  1. RANOLAZINE. [Suspect]
     Active Substance: RANOLAZINE
     Indication: ANGINA PECTORIS
     Dosage: 1000 MG, UNK
     Route: 048
     Dates: start: 20160610

REACTIONS (6)
  - Gait disturbance [Unknown]
  - Cough [Unknown]
  - Stent placement [Unknown]
  - Hypersensitivity [Unknown]
  - Dysphonia [Unknown]
  - Dysstasia [Unknown]

NARRATIVE: CASE EVENT DATE: 201606
